FAERS Safety Report 17113742 (Version 1)
Quarter: 2019Q4

REPORT INFORMATION
  Report Type: Spontaneous
  Country: RO (occurrence: RO)
  Receive Date: 20191205
  Receipt Date: 20191205
  Transmission Date: 20200122
  Serious: Yes (Hospitalization, Other)
  Sender: FDA-Public Use
  Company Number: RO-ABBVIE-19K-135-3180993-00

PATIENT
  Age: 65 Year
  Sex: Female

DRUGS (3)
  1. ARGININE [Concomitant]
     Active Substance: ARGININE
     Indication: PRODUCT USED FOR UNKNOWN INDICATION
  2. IMBRUVICA [Suspect]
     Active Substance: IBRUTINIB
     Indication: CHRONIC LYMPHOCYTIC LEUKAEMIA
     Route: 048
     Dates: start: 201807, end: 201907
  3. ASPATOFORT [Concomitant]
     Active Substance: PYRIDOXINE HYDROCHLORIDE\SODIUM ASPARTATE
     Indication: PRODUCT USED FOR UNKNOWN INDICATION

REACTIONS (3)
  - Transaminases increased [Not Recovered/Not Resolved]
  - Lymphadenopathy [Unknown]
  - Chronic lymphocytic leukaemia transformation [Unknown]

NARRATIVE: CASE EVENT DATE: 201903
